FAERS Safety Report 6503028-0 (Version None)
Quarter: 2009Q4

REPORT INFORMATION
  Report Type: 
  Country: None (occurrence: None)
  Receive Date: 20091217
  Receipt Date: 20091214
  Transmission Date: 20100525
  Serious: Yes (Death)
  Sender: FDA-Public Use
  Company Number: GB-ROCHE-657424

PATIENT
  Age: 36 Year
  Sex: Male

DRUGS (6)
  1. TAMIFLU [Suspect]
     Indication: H1N1 INFLUENZA
     Route: 065
     Dates: start: 20090728, end: 20090728
  2. VENLAFAXINE [Suspect]
     Indication: DEPRESSION
     Dosage: FREQUENCY : 75 MG X 7
     Route: 048
     Dates: start: 20090728
  3. ZOPICLONE [Suspect]
     Indication: INSOMNIA
     Route: 048
     Dates: start: 20090120
  4. MIRTAZAPINE [Suspect]
     Indication: DEPRESSION
     Route: 048
     Dates: end: 20090728
  5. LORAZEPAM [Concomitant]
     Indication: ANXIETY
     Route: 048
     Dates: start: 20090407
  6. DOXYCYCLINE [Concomitant]

REACTIONS (1)
  - DEATH [None]
